FAERS Safety Report 22199852 (Version 1)
Quarter: 2023Q2

REPORT INFORMATION
  Report Type: Spontaneous
  Country: US (occurrence: US)
  Receive Date: 20230412
  Receipt Date: 20230412
  Transmission Date: 20230722
  Serious: Yes (Hospitalization)
  Sender: FDA-Public Use
  Company Number: US-Accord-265018

PATIENT
  Sex: Male
  Weight: 36.65 kg

DRUGS (1)
  1. TEMOZOLOMIDE [Suspect]
     Active Substance: TEMOZOLOMIDE
     Indication: Brain neoplasm malignant
     Dosage: 140MG CAPSULE ALONG WITH A 5MG CAPSULE DAILY
     Route: 048

REACTIONS (1)
  - Neutropenia [Unknown]
